FAERS Safety Report 5255276-8 (Version None)
Quarter: 2007Q1

REPORT INFORMATION
  Report Type: 
  Country: None (occurrence: None)
  Receive Date: 20070305
  Receipt Date: 20070220
  Transmission Date: 20070707
  Serious: Yes (Hospitalization)
  Sender: FDA-Public Use
  Company Number: FR-ROCHE-483947

PATIENT
  Age: 81 Year
  Sex: Female

DRUGS (3)
  1. ROCEPHIN [Suspect]
     Indication: DRUG USE FOR UNKNOWN INDICATION
     Route: 065
     Dates: start: 20070109, end: 20070118
  2. VANCOMYCIN [Concomitant]
     Dates: start: 20070110, end: 20070113
  3. CIPROFLOXACIN [Concomitant]
     Route: 042
     Dates: start: 20070109, end: 20070113

REACTIONS (2)
  - HERPES SIMPLEX [None]
  - RASH MACULO-PAPULAR [None]
